FAERS Safety Report 8001712-3 (Version None)
Quarter: 2011Q4

REPORT INFORMATION
  Report Type: 
  Country: None (occurrence: None)
  Receive Date: 20111222
  Receipt Date: 20111214
  Transmission Date: 20120403
  Serious: Yes (Other)
  Sender: FDA-Public Use
  Company Number: US-JNJFOC-20111207758

PATIENT
  Sex: Female
  Weight: 72.58 kg

DRUGS (2)
  1. UNSPECIFIED ORAL CONTRACEPTIVE [Suspect]
     Indication: CONTRACEPTION
     Route: 048
     Dates: start: 20110801, end: 20110101
  2. ORTHO EVRA [Suspect]
     Indication: CONTRACEPTION
     Route: 062
     Dates: start: 20111129

REACTIONS (2)
  - WRONG TECHNIQUE IN DRUG USAGE PROCESS [None]
  - INAPPROPRIATE SCHEDULE OF DRUG ADMINISTRATION [None]
